FAERS Safety Report 20319936 (Version 2)
Quarter: 2022Q2

REPORT INFORMATION
  Report Type: Report from Study
  Country: US (occurrence: AU)
  Receive Date: 20220111
  Receipt Date: 20220502
  Transmission Date: 20220720
  Serious: Yes (Hospitalization)
  Sender: FDA-Public Use
  Company Number: US-SUN PHARMACEUTICAL INDUSTRIES LTD-2021R1-322699

PATIENT
  Age: 41 Year
  Sex: Female
  Weight: 75.8 kg

DRUGS (17)
  1. DOXORUBICIN HYDROCHLORIDE [Suspect]
     Active Substance: DOXORUBICIN HYDROCHLORIDE
     Indication: Ovarian cancer
     Dosage: 70 MILLIGRAM, SINGLE
     Route: 048
     Dates: start: 20211112, end: 20211217
  2. ZN-C3 [Suspect]
     Active Substance: ZN-C3
     Indication: Ovarian cancer
     Dosage: 300 MILLIGRAM, QD
     Route: 048
     Dates: start: 20211112, end: 20211203
  3. MYLANTA [Concomitant]
     Active Substance: ALUMINUM HYDROXIDE\DIMETHICONE\MAGNESIUM HYDROXIDE
     Indication: Gastrooesophageal reflux disease
     Dosage: UNK
     Route: 065
     Dates: start: 202009
  4. Rennie [Concomitant]
     Indication: Gastrooesophageal reflux disease
     Dosage: UNK
     Route: 065
     Dates: start: 202109
  5. VALIUM [Concomitant]
     Active Substance: DIAZEPAM
     Indication: Anxiety
     Dosage: UNK
     Route: 065
  6. LEXAPRO [Concomitant]
     Active Substance: ESCITALOPRAM OXALATE
     Indication: Anxiety
  7. OXYCODONE HYDROCHLORIDE [Concomitant]
     Active Substance: OXYCODONE HYDROCHLORIDE
     Indication: Headache
     Dosage: UNK
     Route: 065
  8. Metagenics immunogenic [Concomitant]
     Indication: Supplementation therapy
     Dosage: UNK
     Route: 065
  9. Oestro-BR [Concomitant]
     Indication: Supplementation therapy
     Dosage: UNK
     Route: 065
  10. METAGENICS GLUTATHIONE [Concomitant]
     Indication: Supplementation therapy
     Dosage: UNK
     Route: 065
  11. MAGNESIUM [Concomitant]
     Active Substance: MAGNESIUM
     Indication: Supplementation therapy
     Dosage: UNK
     Route: 065
  12. COQ10 EXCEL [Concomitant]
     Indication: Supplementation therapy
     Dosage: UNK
     Route: 065
  13. Adaptan [Concomitant]
     Indication: Supplementation therapy
     Dosage: UNK
     Route: 065
  14. PROGESTERONE [Concomitant]
     Active Substance: PROGESTERONE
     Indication: Supplementation therapy
     Dosage: UNK
     Route: 065
  15. ESTROGEL [Concomitant]
     Active Substance: ESTRADIOL
     Indication: Supplementation therapy
     Dosage: UNK
     Route: 065
  16. FENTANYL [Concomitant]
     Active Substance: FENTANYL
     Indication: Abdominal pain
     Dosage: UNK
     Route: 065
  17. DEXAMETHASONE [Concomitant]
     Active Substance: DEXAMETHASONE
     Indication: Nausea
     Dosage: UNK
     Route: 065
     Dates: start: 20211209

REACTIONS (4)
  - Nausea [Recovered/Resolved]
  - Abdominal pain upper [Recovered/Resolved]
  - Vomiting [Unknown]
  - Diarrhoea [Unknown]

NARRATIVE: CASE EVENT DATE: 20211112
